FAERS Safety Report 7878113-1 (Version None)
Quarter: 2011Q4

REPORT INFORMATION
  Report Type: 
  Country: None (occurrence: None)
  Receive Date: 20111101
  Receipt Date: 20111021
  Transmission Date: 20120403
  Serious: No
  Sender: FDA-Public Use
  Company Number: US-BIOGENIDEC-2011BI040283

PATIENT
  Age: 41 Year
  Sex: Female

DRUGS (2)
  1. STEROIDS [Concomitant]
  2. TYSABRI [Suspect]
     Indication: MULTIPLE SCLEROSIS
     Route: 042
     Dates: start: 20061211

REACTIONS (4)
  - EYE DISORDER [None]
  - WEIGHT DECREASED [None]
  - WEIGHT INCREASED [None]
  - BALANCE DISORDER [None]
